FAERS Safety Report 23258772 (Version 2)
Quarter: 2023Q4

REPORT INFORMATION
  Report Type: Spontaneous
  Country: MY (occurrence: MY)
  Receive Date: 20231204
  Receipt Date: 20231218
  Transmission Date: 20240110
  Serious: Yes (Other)
  Sender: FDA-Public Use
  Company Number: MY-ORGANON-O2311MYS003248

PATIENT
  Age: 31 Year
  Sex: Female

DRUGS (1)
  1. ETONOGESTREL [Suspect]
     Active Substance: ETONOGESTREL
     Dosage: 1 IMPLANT
     Route: 059
     Dates: start: 20231011, end: 20231126

REACTIONS (8)
  - Erythema [Recovered/Resolved]
  - Tenderness [Recovered/Resolved]
  - Purulent discharge [Recovered/Resolved]
  - Implant site swelling [Recovered/Resolved]
  - Device expulsion [Recovered/Resolved]
  - Implant site pain [Unknown]
  - Implant site pustules [Unknown]
  - Wrong technique in product usage process [Unknown]

NARRATIVE: CASE EVENT DATE: 20231020
